FAERS Safety Report 6182557-6 (Version None)
Quarter: 2009Q2

REPORT INFORMATION
  Report Type: 
  Country: None (occurrence: None)
  Receive Date: 20090507
  Receipt Date: 20090427
  Transmission Date: 20091009
  Serious: Yes (Other)
  Sender: FDA-Public Use
  Company Number: US-AMGEN-QUU337210

PATIENT
  Sex: Female
  Weight: 61.3 kg

DRUGS (5)
  1. ENBREL [Suspect]
     Indication: RHEUMATOID ARTHRITIS
     Route: 058
     Dates: start: 19991104
  2. METHOTREXATE [Concomitant]
     Route: 048
  3. ESTROGENS [Concomitant]
     Route: 062
  4. ZOLOFT [Concomitant]
  5. PROMETRIUM [Concomitant]

REACTIONS (26)
  - ALOPECIA [None]
  - ARTHRALGIA [None]
  - COUGH [None]
  - DIARRHOEA [None]
  - DIZZINESS [None]
  - ERYTHEMA [None]
  - EXOSTOSIS [None]
  - FATIGUE [None]
  - FINGER DEFORMITY [None]
  - GASTROOESOPHAGEAL REFLUX DISEASE [None]
  - HEADACHE [None]
  - HEART RATE IRREGULAR [None]
  - INJECTION SITE IRRITATION [None]
  - INJECTION SITE PAIN [None]
  - MALAISE [None]
  - MUSCLE SPASMS [None]
  - MYALGIA [None]
  - NIGHT SWEATS [None]
  - OEDEMA PERIPHERAL [None]
  - ONYCHOMYCOSIS [None]
  - OSTEOMYELITIS [None]
  - PAIN [None]
  - PARAESTHESIA [None]
  - RHEUMATOID ARTHRITIS [None]
  - SENSATION OF HEAVINESS [None]
  - SINUSITIS ASPERGILLUS [None]
